FAERS Safety Report 11537643 (Version 1)
Quarter: 2015Q3

REPORT INFORMATION
  Report Type: Other
  Country: US (occurrence: US)
  Receive Date: 20150922
  Receipt Date: 20150922
  Transmission Date: 20151125
  Serious: Yes (Other)
  Sender: FDA-Public Use
  Company Number: US-DEP_12659_2015

PATIENT
  Age: 71 Year
  Sex: Male
  Weight: 86 kg

DRUGS (15)
  1. UNSPECIFIED MEDICATION FOR GOUT [Concomitant]
     Indication: GOUT
     Dosage: DF
  2. TYLENOL [Concomitant]
     Active Substance: ACETAMINOPHEN
     Indication: PAIN
     Dosage: DF
  3. NUCYNTA ER [Suspect]
     Active Substance: TAPENTADOL HYDROCHLORIDE
     Route: 048
     Dates: start: 2012, end: 2013
  4. NSAIDS [Concomitant]
     Active Substance: UNSPECIFIED INGREDIENT
     Indication: PAIN
     Dosage: DF
  5. NUCYNTA ER [Suspect]
     Active Substance: TAPENTADOL HYDROCHLORIDE
     Route: 048
     Dates: start: 2013, end: 2015
  6. NUCYNTA ER [Suspect]
     Active Substance: TAPENTADOL HYDROCHLORIDE
     Route: 048
     Dates: start: 2012, end: 2012
  7. NUCYNTA [Suspect]
     Active Substance: TAPENTADOL HYDROCHLORIDE
     Route: 048
     Dates: start: 2012, end: 2012
  8. MELOXICAM. [Concomitant]
     Active Substance: MELOXICAM
     Dosage: FOR 4-5 YEARS
     Route: 048
  9. GENERIC GABAPENTIN [Suspect]
     Active Substance: GABAPENTIN
     Dosage: TITRATED OFF OF IT GABAPENTIN THERAPY
     Route: 048
     Dates: end: 201508
  10. NUCYNTA ER [Suspect]
     Active Substance: TAPENTADOL HYDROCHLORIDE
     Indication: BACK PAIN
     Route: 048
     Dates: start: 2013, end: 2013
  11. NUCYNTA ER [Suspect]
     Active Substance: TAPENTADOL HYDROCHLORIDE
     Route: 048
     Dates: start: 2015, end: 201507
  12. NUCYNTA ER [Suspect]
     Active Substance: TAPENTADOL HYDROCHLORIDE
     Route: 048
     Dates: start: 201507, end: 20150907
  13. GENERIC GABAPENTIN [Suspect]
     Active Substance: GABAPENTIN
     Indication: NEURALGIA
     Route: 048
  14. GENERIC GABAPENTIN [Suspect]
     Active Substance: GABAPENTIN
     Route: 048
     Dates: start: 2014
  15. NUCYNTA [Suspect]
     Active Substance: TAPENTADOL HYDROCHLORIDE
     Indication: BACK PAIN
     Dosage: 2-3 TIMES DAILY
     Route: 048
     Dates: start: 2012

REACTIONS (7)
  - Spinal disorder [Unknown]
  - Pruritus [Recovering/Resolving]
  - Medication error [Recovered/Resolved]
  - Overdose [Recovered/Resolved]
  - Depression [Recovered/Resolved]
  - Discomfort [Recovered/Resolved]
  - Altered state of consciousness [Recovered/Resolved]

NARRATIVE: CASE EVENT DATE: 2012
